FAERS Safety Report 15647842 (Version 13)
Quarter: 2020Q2

REPORT INFORMATION
  Report Type: Report from Study
  Country: CA (occurrence: CA)
  Receive Date: 20181122
  Receipt Date: 20200610
  Transmission Date: 20200713
  Serious: Yes (Hospitalization, Other)
  Sender: FDA-Public Use
  Company Number: CA-TAKEDA-2018TUS033298

PATIENT
  Age: 58 Year
  Sex: Female

DRUGS (6)
  1. PONATINIB [Interacting]
     Active Substance: PONATINIB
     Dosage: UNK
     Route: 048
     Dates: start: 20190108
  2. PONATINIB [Suspect]
     Active Substance: PONATINIB
     Indication: CHRONIC MYELOID LEUKAEMIA
     Dosage: UNK
     Route: 048
     Dates: start: 20181010
  3. PONATINIB [Interacting]
     Active Substance: PONATINIB
     Dosage: 30 MILLIGRAM
     Route: 048
  4. PONATINIB [Interacting]
     Active Substance: PONATINIB
     Dosage: 15 MILLIGRAM
     Route: 048
  5. PONATINIB [Interacting]
     Active Substance: PONATINIB
     Dosage: 45 MILLIGRAM
     Route: 048
  6. PONATINIB [Interacting]
     Active Substance: PONATINIB
     Dosage: 15 MILLIGRAM
     Route: 048
     Dates: start: 20181016

REACTIONS (11)
  - Delusion [Recovered/Resolved with Sequelae]
  - Pleural effusion [Unknown]
  - Hyperglycaemia [Recovered/Resolved with Sequelae]
  - Gastrointestinal haemorrhage [Unknown]
  - Pneumonia [Recovered/Resolved with Sequelae]
  - Blood glucose decreased [Recovered/Resolved with Sequelae]
  - Drug interaction [Recovered/Resolved with Sequelae]
  - Hepatic enzyme increased [Recovered/Resolved with Sequelae]
  - Pancreatic enlargement [Recovered/Resolved with Sequelae]
  - Blood glucose increased [Recovered/Resolved with Sequelae]
  - Adverse drug reaction [Recovered/Resolved with Sequelae]

NARRATIVE: CASE EVENT DATE: 20181102
